FAERS Safety Report 7513344-1 (Version None)
Quarter: 2011Q2

REPORT INFORMATION
  Report Type: 
  Country: None (occurrence: None)
  Receive Date: 20110531
  Receipt Date: 20110526
  Transmission Date: 20111010
  Serious: Yes (Other)
  Sender: FDA-Public Use
  Company Number: VE-PFIZER INC-2011079948

PATIENT
  Age: 65 Year
  Sex: Female

DRUGS (4)
  1. LIPITOR [Suspect]
     Indication: HYPERCHOLESTEROLAEMIA
     Dosage: 40 MG, 1X/DAY
     Route: 048
     Dates: end: 20110505
  2. TRASTUZUMAB [Concomitant]
     Indication: CHEMOTHERAPY
     Dosage: UNK
     Dates: start: 20110425
  3. DOXORUBICIN [Concomitant]
     Indication: CHEMOTHERAPY
     Dosage: UNK
     Dates: start: 20110425
  4. NEUPOGEN [Concomitant]
     Indication: CHEMOTHERAPY
     Dosage: UNK
     Dates: start: 20110425

REACTIONS (6)
  - FATIGUE [None]
  - MYALGIA [None]
  - METASTASES TO BONE [None]
  - METASTASES TO LUNG [None]
  - DISCOMFORT [None]
  - ASTHENIA [None]
